FAERS Safety Report 8596772-5 (Version None)
Quarter: 2012Q3

REPORT INFORMATION
  Report Type: 
  Country: None (occurrence: None)
  Receive Date: 20120815
  Receipt Date: 20120629
  Transmission Date: 20120928
  Serious: No
  Sender: FDA-Public Use
  Company Number: US-ASTRAZENECA-2012SE44707

PATIENT
  Age: 40 Year
  Sex: Female
  Weight: 90.7 kg

DRUGS (7)
  1. ADVAIR HFA [Concomitant]
  2. ZAFIRLUKAST [Suspect]
     Indication: ASTHMA
     Route: 048
     Dates: start: 20120601
  3. NEFEDIPINE [Concomitant]
  4. LEVOXYL [Concomitant]
  5. THYROID TAB [Concomitant]
  6. CYMBALTA [Concomitant]
  7. BIRTH CONTROL [Concomitant]

REACTIONS (10)
  - CHEST PAIN [None]
  - DIZZINESS [None]
  - DRUG INTOLERANCE [None]
  - NAUSEA [None]
  - MALAISE [None]
  - PALPITATIONS [None]
  - TREMOR [None]
  - PSYCHOMOTOR HYPERACTIVITY [None]
  - OFF LABEL USE [None]
  - INTENTIONAL DRUG MISUSE [None]
